FAERS Safety Report 5102602-6 (Version None)
Quarter: 2006Q3

REPORT INFORMATION
  Report Type: 
  Country: None (occurrence: None)
  Receive Date: 20060912
  Receipt Date: 20060901
  Transmission Date: 20061208
  Serious: Yes (Other)
  Sender: FDA-Public Use
  Company Number: US-MERCK-0609USA00538

PATIENT
  Sex: Female

DRUGS (1)
  1. FOSAMAX [Suspect]
     Route: 048

REACTIONS (6)
  - ABASIA [None]
  - ANOREXIA [None]
  - DYSGEUSIA [None]
  - MYOCARDIAL INFARCTION [None]
  - PAIN [None]
  - TREMOR [None]
